FAERS Safety Report 5235450-7 (Version None)
Quarter: 2007Q1

REPORT INFORMATION
  Report Type: 
  Country: None (occurrence: None)
  Receive Date: 20070207
  Receipt Date: 20070207
  Transmission Date: 20070707
  Serious: Yes (Hospitalization)
  Sender: FDA-Public Use
  Company Number: None

PATIENT
  Sex: Female
  Weight: 82.1 kg

DRUGS (4)
  1. CYCLOPHOSPHAMIDE [Suspect]
     Dosage: 1230 MG
  2. DOXORUBICIN HYDROCHLORIDE [Suspect]
     Dosage: 82 MG
  3. PREDNISONE [Suspect]
     Dosage: 500 MG
  4. VINCRISTINE SULFATE [Suspect]
     Dosage: 2.3 MG

REACTIONS (13)
  - BLOOD CULTURE POSITIVE [None]
  - CARDIO-RESPIRATORY ARREST [None]
  - FOAMING AT MOUTH [None]
  - HAEMOPTYSIS [None]
  - HYPERTHERMIA [None]
  - HYPOKALAEMIA [None]
  - HYPOTENSION [None]
  - HYPOVENTILATION [None]
  - LOSS OF CONSCIOUSNESS [None]
  - METABOLIC ALKALOSIS [None]
  - PSEUDOMONAS INFECTION [None]
  - RESPIRATORY RATE INCREASED [None]
  - WHITE BLOOD CELL COUNT DECREASED [None]
